FAERS Safety Report 9737248 (Version 1)
Quarter: 2013Q4

REPORT INFORMATION
  Report Type: Spontaneous
  Country: LB (occurrence: LB)
  Receive Date: 20131206
  Receipt Date: 20131206
  Transmission Date: 20140711
  Serious: Yes (Hospitalization)
  Sender: FDA-Public Use
  Company Number: LB-ASTRAZENECA-2013SE87959

PATIENT
  Age: 21 Year
  Sex: Male

DRUGS (5)
  1. SEROQUEL [Suspect]
     Indication: BIPOLAR II DISORDER
     Route: 048
  2. DIVALPROEX SODIUM [Interacting]
     Indication: BIPOLAR II DISORDER
  3. PANADOL [Concomitant]
  4. PROFENID [Concomitant]
  5. VALIUM [Concomitant]

REACTIONS (5)
  - Drug interaction [Recovered/Resolved]
  - Hyperammonaemia [Recovered/Resolved]
  - Confusional state [Recovered/Resolved]
  - Disorientation [Recovered/Resolved]
  - Lethargy [Recovered/Resolved]
